FAERS Safety Report 8517704-1 (Version None)
Quarter: 2012Q2

REPORT INFORMATION
  Report Type: 
  Country: None (occurrence: None)
  Receive Date: 20120406
  Receipt Date: 20110201
  Transmission Date: 20120825
  Serious: Yes (Other)
  Sender: FDA-Public Use
  Company Number: PHHY2010US62861

PATIENT
  Age: 55 Year
  Sex: Female

DRUGS (2)
  1. METHADONE HYDROCHLORIDE [Concomitant]
  2. TASIGNA [Suspect]
     Indication: GASTRIC CANCER
     Dosage: 400 MG, BID, ORAL
     Route: 048
     Dates: end: 20100913

REACTIONS (3)
  - NEOPLASM MALIGNANT [None]
  - DRUG INEFFECTIVE [None]
  - NEOPLASM PROGRESSION [None]
